FAERS Safety Report 24139762 (Version 1)
Quarter: 2024Q3

REPORT INFORMATION
  Report Type: Spontaneous
  Country: ES (occurrence: ES)
  Receive Date: 20240726
  Receipt Date: 20240726
  Transmission Date: 20241017
  Serious: Yes (Death, Other)
  Sender: EXELIXIS
  Company Number: None

PATIENT
  Age: 67 Year
  Sex: Male

DRUGS (1)
  1. CABOMETYX [Suspect]
     Active Substance: CABOZANTINIB S-MALATE
     Indication: Clear cell renal cell carcinoma
     Dosage: 20 MG, QD
     Route: 048
     Dates: start: 20240315, end: 20240424

REACTIONS (3)
  - Arteriovenous fistula maturation failure [Fatal]
  - Arteriovenous fistula site haemorrhage [Fatal]
  - Impaired healing [Fatal]

NARRATIVE: CASE EVENT DATE: 20240424
